FAERS Safety Report 4727021-3 (Version None)
Quarter: 2005Q3

REPORT INFORMATION
  Report Type: 
  Country: None (occurrence: None)
  Receive Date: 20050726
  Receipt Date: 20050726
  Transmission Date: 20060218
  Serious: Yes (Life-Threatening, Hospitalization, Disabling)
  Sender: FDA-Public Use
  Company Number: None

PATIENT
  Sex: Female

DRUGS (4)
  1. CIPROFLOXACIN [Suspect]
     Indication: POSTOPERATIVE ILEUS
     Dosage: 400 MG EVERY 12 HOURS INTRAVENOU
     Route: 042
     Dates: start: 20050302, end: 20050305
  2. CEFTRIAXONE [Suspect]
     Indication: POSTOPERATIVE ILEUS
     Dosage: 1 GRAM ONCE DAILY INTRAVENOU
     Route: 042
     Dates: start: 20050303, end: 20050305
  3. AZTREONAM [Concomitant]
  4. CEFAZOLIN [Concomitant]

REACTIONS (1)
  - CLOSTRIDIUM COLITIS [None]
